FAERS Safety Report 9467772 (Version 1)
Quarter: 2013Q3

REPORT INFORMATION
  Report Type: Spontaneous
  Country: FI (occurrence: FI)
  Receive Date: 20130821
  Receipt Date: 20130821
  Transmission Date: 20140515
  Serious: Yes (Other)
  Sender: FDA-Public Use
  Company Number: FI-ROCHE-1261345

PATIENT
  Age: 75 Year
  Sex: Female

DRUGS (4)
  1. RITUXIMAB [Suspect]
     Indication: VASCULITIS
     Dosage: 1 WEEKLY INFUSION FOUR TIMES
     Route: 042
     Dates: start: 20130715, end: 20130715
  2. RITUXIMAB [Suspect]
     Dosage: 1 WEEKLY INFUSION THREE TIMES
     Route: 042
  3. RITUXIMAB [Suspect]
     Dosage: 1 WEEKLY INFUSION TWICE
     Route: 042
     Dates: start: 20130812
  4. CORTISONE [Concomitant]

REACTIONS (3)
  - Muscular weakness [Recovering/Resolving]
  - Local swelling [Recovering/Resolving]
  - Fall [Unknown]
